FAERS Safety Report 8918622 (Version 2)
Quarter: 2012Q4

REPORT INFORMATION
  Report Type: Report from Study
  Country: US (occurrence: US)
  Receive Date: 20121120
  Receipt Date: 20121127
  Transmission Date: 20130627
  Serious: Yes (Hospitalization)
  Sender: FDA-Public Use
  Company Number: US-JNJFOC-20121108412

PATIENT
  Age: 2 Year
  Sex: Male
  Weight: 13.25 kg

DRUGS (3)
  1. REMICADE [Suspect]
     Indication: CROHN^S DISEASE
     Route: 042
     Dates: start: 20111122, end: 20120403
  2. AZATHIOPRINE [Concomitant]
  3. FOLIC ACID [Concomitant]

REACTIONS (1)
  - Interleukin level decreased [Recovered/Resolved]
